FAERS Safety Report 6221822-0 (Version None)
Quarter: 2009Q2

REPORT INFORMATION
  Report Type: 
  Country: None (occurrence: None)
  Receive Date: 20090608
  Receipt Date: 20090604
  Transmission Date: 20091009
  Serious: Yes (Hospitalization, Disabling)
  Sender: FDA-Public Use
  Company Number: SPV1-2009-01145

PATIENT
  Age: 50 Year
  Sex: Male

DRUGS (1)
  1. FOSRENOL [Suspect]
     Indication: HYPERPHOSPHATAEMIA
     Dosage: 1000 MG, WITH MEALS, ORAL
     Route: 048
     Dates: start: 20080101

REACTIONS (2)
  - ABASIA [None]
  - PAIN IN EXTREMITY [None]
